FAERS Safety Report 4474309-X (Version None)
Quarter: 2004Q4

REPORT INFORMATION
  Report Type: 
  Country: None (occurrence: None)
  Receive Date: 20041012
  Receipt Date: 20041012
  Transmission Date: 20050328
  Serious: Yes (Other)
  Sender: FDA-Public Use
  Company Number: None

PATIENT
  Age: 32 Year
  Sex: Female
  Weight: 137.4399 kg

DRUGS (4)
  1. CYCLOPHOSPHAMIDE [Suspect]
     Indication: BREAST CANCER
     Dosage: 1350 MG IV EVERY 3 WEEKS
     Route: 042
     Dates: start: 20040916
  2. CYCLOPHOSPHAMIDE [Suspect]
     Indication: BREAST CANCER
     Dosage: 1350 MG IV EVERY 3 WEEKS
     Route: 042
     Dates: start: 20041007
  3. DOXORUBICIN 60 MG/M2 IV [Suspect]
     Indication: BREAST CANCER
     Dosage: 135 MG EVERY 3 WEEKS
     Route: 042
     Dates: start: 20040916
  4. DOXORUBICIN 60 MG/M2 IV [Suspect]
     Indication: BREAST CANCER
     Dosage: 135 MG EVERY 3 WEEKS
     Route: 042
     Dates: start: 20041007

REACTIONS (1)
  - PAIN [None]
